FAERS Safety Report 14829966 (Version 2)
Quarter: 2018Q2

REPORT INFORMATION
  Report Type: Spontaneous
  Country: US (occurrence: US)
  Receive Date: 20180430
  Receipt Date: 20180517
  Transmission Date: 20180711
  Serious: Yes (Hospitalization, Other)
  Sender: FDA-Public Use
  Company Number: US-PFIZER INC-2018043350

PATIENT
  Age: 75 Year
  Sex: Male

DRUGS (2)
  1. TIKOSYN [Suspect]
     Active Substance: DOFETILIDE
     Indication: ATRIAL FIBRILLATION
     Dosage: 375 MG, UNK
     Dates: start: 200307
  2. TIKOSYN [Suspect]
     Active Substance: DOFETILIDE
     Dosage: 500 MG, DAILY
     Dates: start: 200307

REACTIONS (2)
  - Aneurysm [Not Recovered/Not Resolved]
  - Thrombosis [Not Recovered/Not Resolved]

NARRATIVE: CASE EVENT DATE: 20030723
